FAERS Safety Report 5623484-X (Version None)
Quarter: 2008Q1

REPORT INFORMATION
  Report Type: 
  Country: None (occurrence: None)
  Receive Date: 20080212
  Receipt Date: 20080208
  Transmission Date: 20080703
  Serious: Yes (Other)
  Sender: FDA-Public Use
  Company Number: CA-ALLERGAN-0709818US

PATIENT
  Sex: Female

DRUGS (3)
  1. COMBIGAN [Suspect]
     Indication: DRUG USE FOR UNKNOWN INDICATION
  2. SOTALOL [Concomitant]
     Dosage: 80 MG, BID
  3. ASPIRIN [Concomitant]
     Dosage: 80 MG, QAM

REACTIONS (6)
  - ARRHYTHMIA [None]
  - DRY MOUTH [None]
  - FATIGUE [None]
  - OEDEMA PERIPHERAL [None]
  - SENSATION OF HEAVINESS [None]
  - SOMNOLENCE [None]
